FAERS Safety Report 8971131 (Version 2)
Quarter: 2013Q1

REPORT INFORMATION
  Report Type: Spontaneous
  Country: US (occurrence: US)
  Receive Date: 20121218
  Receipt Date: 20130116
  Transmission Date: 20140127
  Serious: Yes (Hospitalization, Other)
  Sender: FDA-Public Use
  Company Number: US-PFIZER INC-2012318167

PATIENT
  Sex: Male

DRUGS (1)
  1. ATORVASTATIN CALCIUM [Suspect]
     Dosage: 10 MG, UNK

REACTIONS (3)
  - Drug ineffective [Unknown]
  - Angiopathy [Unknown]
  - Arterial occlusive disease [Unknown]
